FAERS Safety Report 4704631-0 (Version None)
Quarter: 2005Q2

REPORT INFORMATION
  Report Type: 
  Country: None (occurrence: None)
  Receive Date: 20050630
  Receipt Date: 20050622
  Transmission Date: 20051028
  Serious: Yes (Hospitalization)
  Sender: FDA-Public Use
  Company Number: 2005056952

PATIENT
  Age: 73 Year
  Sex: Female
  Weight: 67.1324 kg

DRUGS (3)
  1. BEXTRA [Suspect]
     Indication: ABASIA
     Dosage: SEE IMAGE
     Route: 048
     Dates: start: 20041101, end: 20041101
  2. DARVOCET (DEXTROPROPOXYPHENE NAPSILATE, PARACETAMOL) [Concomitant]
  3. MUSCLE RELAXANTS (MUSCLE RELAXANTS) [Concomitant]

REACTIONS (3)
  - BACK DISORDER [None]
  - NAUSEA [None]
  - UNEVALUABLE EVENT [None]
